FAERS Safety Report 4352344-X (Version None)
Quarter: 2004Q2

REPORT INFORMATION
  Report Type: 
  Country: None (occurrence: None)
  Receive Date: 20040428
  Receipt Date: 20040420
  Transmission Date: 20050107
  Serious: Yes (Hospitalization)
  Sender: FDA-Public Use
  Company Number: FR-JNJFOC-20040404250

PATIENT
  Age: 54 Year
  Sex: Female

DRUGS (3)
  1. ZALDIAR (TRAMADOL/APAP) UNSPECIFIED [Suspect]
     Indication: SCIATICA
     Dosage: ORAL
     Route: 048
     Dates: end: 20040307
  2. PIROXICAM [Concomitant]
  3. NORMACOL (NORMACOL) [Concomitant]

REACTIONS (2)
  - HEADACHE [None]
  - INTESTINAL OBSTRUCTION [None]
